FAERS Safety Report 21701726 (Version 1)
Quarter: 2022Q4

REPORT INFORMATION
  Report Type: Spontaneous
  Country: US (occurrence: US)
  Receive Date: 20221208
  Receipt Date: 20221208
  Transmission Date: 20230112
  Serious: No
  Sender: FDA-Public Use
  Company Number: US-JNJFOC-20191131183

PATIENT
  Sex: Female
  Weight: 104.42 kg

DRUGS (1)
  1. IMODIUM MULTI-SYMPTOM RELIEF [Suspect]
     Active Substance: DIMETHICONE\LOPERAMIDE HYDROCHLORIDE
     Indication: Diarrhoea
     Dosage: 2 CAPLETS ONCE DAILY
     Route: 048

REACTIONS (2)
  - Diarrhoea [Unknown]
  - Product label issue [Unknown]

NARRATIVE: CASE EVENT DATE: 20190101
